FAERS Safety Report 5163088-9 (Version None)
Quarter: 2006Q4

REPORT INFORMATION
  Report Type: 
  Country: None (occurrence: None)
  Receive Date: 20061201
  Receipt Date: 20061121
  Transmission Date: 20070319
  Serious: Yes (Hospitalization)
  Sender: FDA-Public Use
  Company Number: FR-ABBOTT-06P-056-0351081-00

PATIENT
  Age: 72 Year
  Sex: Female

DRUGS (2)
  1. DEPAKOTE [Suspect]
     Indication: DRUG USE FOR UNKNOWN INDICATION
     Route: 048
     Dates: start: 20060101
  2. DEPAKOTE [Suspect]
     Route: 048
     Dates: start: 20040101, end: 20060101

REACTIONS (2)
  - ACCIDENTAL OVERDOSE [None]
  - CEREBRAL HAEMORRHAGE [None]
